FAERS Safety Report 4455305-5 (Version None)
Quarter: 2004Q3

REPORT INFORMATION
  Report Type: 
  Country: None (occurrence: None)
  Receive Date: 20040825
  Receipt Date: 20040709
  Transmission Date: 20050211
  Serious: No
  Sender: FDA-Public Use
  Company Number: 207761

PATIENT
  Age: 38 Year
  Sex: Male

DRUGS (2)
  1. RAPTIVA [Suspect]
     Indication: PSORIASIS
     Dosage: 58.86 MG,SINGLE,SUBCUTANEOUS; 84.09 MG,1/WEEK,SUBCUTANEOUS
     Route: 058
     Dates: start: 20040508, end: 20040508
  2. RAPTIVA [Suspect]
     Indication: PSORIASIS
     Dosage: 58.86 MG,SINGLE,SUBCUTANEOUS; 84.09 MG,1/WEEK,SUBCUTANEOUS
     Route: 058
     Dates: start: 20040501

REACTIONS (2)
  - BASOPHIL COUNT INCREASED [None]
  - FATIGUE [None]
